FAERS Safety Report 8757776 (Version 2)
Quarter: 2012Q4

REPORT INFORMATION
  Report Type: 
  Country: GB (occurrence: GB)
  Receive Date: 20120828
  Receipt Date: 20121217
  Transmission Date: 20130627
  Serious: Yes (Other)
  Sender: FDA-Public Use
  Company Number: PHHY2012GB072637

PATIENT
  Age: 45 Year
  Sex: Male
  Weight: 86.17 kg

DRUGS (4)
  1. VENLAFAXINE HYDROCHLORIDE [Suspect]
     Indication: MENTAL DISORDER
     Dosage: 150 mg, UNK
     Route: 048
     Dates: start: 20120601
  2. ZOPICLONE [Suspect]
     Indication: INSOMNIA RELATED TO ANOTHER MENTAL CONDITION
     Dosage: 3.75 mg, UNK
     Route: 048
     Dates: start: 20120805, end: 20120805
  3. PREGABALIN [Concomitant]
  4. PREGABALIN [Concomitant]

REACTIONS (14)
  - Depersonalisation [Unknown]
  - Derealisation [Unknown]
  - Drooling [Unknown]
  - Substance-induced psychotic disorder [Recovered/Resolved]
  - Fear [Recovered/Resolved]
  - Tachyphrenia [Recovered/Resolved]
  - Somnolence [Unknown]
  - Paralysis [Recovered/Resolved]
  - Heart rate increased [Recovered/Resolved]
  - Hallucination [Recovered/Resolved]
  - Hypotension [Recovered/Resolved]
  - Vomiting [Recovered/Resolved]
  - Tooth discolouration [Unknown]
  - Movement disorder [Unknown]
